FAERS Safety Report 4836993-8 (Version None)
Quarter: 2005Q4

REPORT INFORMATION
  Report Type: 
  Country: None (occurrence: None)
  Receive Date: 20051117
  Receipt Date: 20050728
  Transmission Date: 20060501
  Serious: No
  Sender: FDA-Public Use
  Company Number: 05-NIP00121

PATIENT

DRUGS (1)
  1. NIPENT [Suspect]
     Indication: SPLENIC MARGINAL ZONE LYMPHOMA
     Dosage: 0.2857 MG/M2 (4 MG/M2, 1 IN 2 WK), INTRAVENOUS
     Route: 042

REACTIONS (1)
  - LUNG SQUAMOUS CELL CARCINOMA STAGE I [None]
